FAERS Safety Report 5356623-9 (Version None)
Quarter: 2007Q2

REPORT INFORMATION
  Report Type: 
  Country: None (occurrence: None)
  Receive Date: 20070614
  Receipt Date: 20070611
  Transmission Date: 20071010
  Serious: Yes (Other)
  Sender: FDA-Public Use
  Company Number: PHEH2007US08617

PATIENT
  Age: 65 Year
  Sex: Male

DRUGS (1)
  1. DIOVAN HCT [Suspect]
     Indication: HYPERTENSION
     Dosage: 80MG VAL/12.5MG HCT, QD
     Route: 048
     Dates: start: 20061001, end: 20070608

REACTIONS (2)
  - BLOOD URINE PRESENT [None]
  - PENILE SWELLING [None]
